FAERS Safety Report 4694814-0 (Version None)
Quarter: 2005Q2

REPORT INFORMATION
  Report Type: 
  Country: None (occurrence: None)
  Receive Date: 20050617
  Receipt Date: 20050613
  Transmission Date: 20051028
  Serious: Yes (Hospitalization)
  Sender: FDA-Public Use
  Company Number: 2005BH000268

PATIENT
  Age: 52 Year
  Sex: Female

DRUGS (1)
  1. DIANEAL [Suspect]
     Dosage: IP
     Route: 033

REACTIONS (3)
  - PRURITUS [None]
  - RASH [None]
  - URINARY TRACT INFECTION [None]
